FAERS Safety Report 10233484 (Version 1)
Quarter: 2014Q2

REPORT INFORMATION
  Report Type: Report from Study
  Country: GB (occurrence: GB)
  Receive Date: 20140612
  Receipt Date: 20140612
  Transmission Date: 20141212
  Serious: Yes (Life-Threatening)
  Sender: FDA-Public Use
  Company Number: PHHY2014GB071998

PATIENT
  Age: 47 Year
  Sex: Female

DRUGS (1)
  1. AFINITOR [Suspect]
     Indication: PANCREATIC NEUROENDOCRINE TUMOUR
     Dosage: 10 MG, QD
     Dates: start: 20131011

REACTIONS (4)
  - Angina pectoris [Not Recovered/Not Resolved]
  - Chest pain [Unknown]
  - Hypertension [Unknown]
  - Urinary tract infection [Unknown]
